FAERS Safety Report 6091699-5 (Version None)
Quarter: 2009Q1

REPORT INFORMATION
  Report Type: 
  Country: None (occurrence: None)
  Receive Date: 20090225
  Receipt Date: 20080408
  Transmission Date: 20090719
  Serious: No
  Sender: FDA-Public Use
  Company Number: A0723243A

PATIENT
  Sex: Female

DRUGS (1)
  1. VALTREX [Suspect]
     Route: 065
     Dates: start: 20070101

REACTIONS (2)
  - HERPES ZOSTER [None]
  - THERAPEUTIC RESPONSE DECREASED [None]
